FAERS Safety Report 24360850 (Version 1)
Quarter: 2024Q3

REPORT INFORMATION
  Report Type: Spontaneous
  Country: ES (occurrence: ES)
  Receive Date: 20240925
  Receipt Date: 20240925
  Transmission Date: 20241017
  Serious: Yes (Other)
  Sender: MERCK
  Company Number: None

PATIENT
  Age: 72 Year
  Sex: Male

DRUGS (1)
  1. ONCOTICE [Suspect]
     Active Substance: BACILLUS CALMETTE-GUERIN SUBSTRAIN TICE LIVE ANTIGEN
     Indication: Bladder neoplasm
     Dosage: 3 VIALS
     Route: 043
     Dates: start: 20211104

REACTIONS (2)
  - Tenosynovitis [Recovering/Resolving]
  - Arthritis reactive [Recovering/Resolving]

NARRATIVE: CASE EVENT DATE: 20220315
